FAERS Safety Report 9477049 (Version 1)
Quarter: 2013Q3

REPORT INFORMATION
  Report Type: Spontaneous
  Country: US (occurrence: US)
  Receive Date: 20130826
  Receipt Date: 20130826
  Transmission Date: 20140515
  Serious: No
  Sender: FDA-Public Use
  Company Number: US-BAYER-2013-102874

PATIENT
  Age: 74 Year
  Sex: Female
  Weight: 75.28 kg

DRUGS (4)
  1. ALEVE CAPLET [Suspect]
     Dosage: 1 DF, BID
     Route: 048
     Dates: start: 20130817, end: 20130818
  2. BAYER ASPIRIN REGIMEN ADULT LOW STRENGTH [Concomitant]
     Dosage: UNK
  3. LEVOTHYROXINE [Concomitant]
     Dosage: UNK
  4. OSTEO BI-FLEX [Concomitant]
     Dosage: UNK

REACTIONS (2)
  - Fatigue [Recovered/Resolved]
  - Disturbance in attention [Recovered/Resolved]
